FAERS Safety Report 5556004-9 (Version None)
Quarter: 2007Q4

REPORT INFORMATION
  Report Type: 
  Country: None (occurrence: None)
  Receive Date: 20071213
  Receipt Date: 20071205
  Transmission Date: 20080405
  Serious: Yes (Hospitalization)
  Sender: FDA-Public Use
  Company Number: IT-PFIZER INC-2007102811

PATIENT
  Age: 58 Year
  Sex: Male

DRUGS (1)
  1. CARDURA [Suspect]
     Indication: HYPERTENSION
     Route: 048
     Dates: start: 20070901, end: 20070910

REACTIONS (4)
  - ISCHAEMIA [None]
  - RESPIRATORY DEPRESSION [None]
  - SENSE OF OPPRESSION [None]
  - SINUS BRADYCARDIA [None]
